FAERS Safety Report 14467351 (Version 1)
Quarter: 2018Q1

REPORT INFORMATION
  Report Type: Spontaneous
  Country: BE (occurrence: BE)
  Receive Date: 20180131
  Receipt Date: 20180131
  Transmission Date: 20180509
  Serious: Yes (Other)
  Sender: FDA-Public Use
  Company Number: BE-LUPIN PHARMACEUTICALS INC.-2018-00424

PATIENT
  Age: 27 Year
  Sex: Male

DRUGS (1)
  1. CEFTRIAXONE. [Suspect]
     Active Substance: CEFTRIAXONE
     Indication: LYME DISEASE
     Dosage: UNK
     Route: 065

REACTIONS (3)
  - Rash [Unknown]
  - Hypersensitivity [None]
  - Angioedema [Unknown]
